FAERS Safety Report 5572763-3 (Version None)
Quarter: 2007Q4

REPORT INFORMATION
  Report Type: 
  Country: None (occurrence: None)
  Receive Date: 20071222
  Receipt Date: 20071213
  Transmission Date: 20080405
  Serious: Yes (Hospitalization, Other)
  Sender: FDA-Public Use
  Company Number: FR-PFIZER INC-2007105950

PATIENT
  Sex: Male

DRUGS (1)
  1. ZOXAN LP [Suspect]

REACTIONS (9)
  - BURNING SENSATION [None]
  - CENTRAL NERVOUS SYSTEM STIMULATION [None]
  - HYPOAESTHESIA FACIAL [None]
  - ILL-DEFINED DISORDER [None]
  - NERVOUSNESS [None]
  - PRURITUS [None]
  - RASH MACULAR [None]
  - TINNITUS [None]
  - VISUAL DISTURBANCE [None]
